FAERS Safety Report 9375677 (Version 3)
Quarter: 2015Q1

REPORT INFORMATION
  Report Type: Spontaneous
  Country: US (occurrence: US)
  Receive Date: 20130628
  Receipt Date: 20150123
  Transmission Date: 20150721
  Serious: Yes (Hospitalization)
  Sender: FDA-Public Use
  Company Number: US-009507513-1306USA012384

PATIENT
  Sex: Female
  Weight: 84.81 kg

DRUGS (1)
  1. NUVARING [Suspect]
     Active Substance: ETHINYL ESTRADIOL\ETONOGESTREL
     Indication: CONTRACEPTION
     Dosage: UNK
     Route: 067
     Dates: start: 201005

REACTIONS (11)
  - Leukocytosis [Unknown]
  - Crohn^s disease [Unknown]
  - Papilloma viral infection [Unknown]
  - International normalised ratio increased [Unknown]
  - Abscess [Unknown]
  - Pelvic venous thrombosis [Unknown]
  - Foot fracture [Unknown]
  - Crohn^s disease [Unknown]
  - Crohn^s disease [Unknown]
  - Genital herpes simplex [Unknown]
  - Intestinal resection [Unknown]

NARRATIVE: CASE EVENT DATE: 20121112
